FAERS Safety Report 25002350 (Version 2)
Quarter: 2025Q3

REPORT INFORMATION
  Report Type: Report from Study
  Country: IN (occurrence: IN)
  Receive Date: 20250224
  Receipt Date: 20250810
  Transmission Date: 20251021
  Serious: Yes (Other)
  Sender: ALEXION PHARMACEUTICALS
  Company Number: IN-AstraZeneca-CH-00809562A

PATIENT
  Sex: Female
  Weight: 52 kg

DRUGS (1)
  1. DURVALUMAB [Suspect]
     Active Substance: DURVALUMAB
     Indication: Biliary neoplasm

REACTIONS (1)
  - Pleural effusion [Unknown]
